FAERS Safety Report 16010151 (Version 1)
Quarter: 2019Q1

REPORT INFORMATION
  Report Type: Report from Study
  Country: None (occurrence: US)
  Receive Date: 20190225
  Receipt Date: 20190225
  Transmission Date: 20190418
  Serious: Yes (Death)
  Sender: FDA-Public Use
  Company Number: US-ABBVIE-19K-163-2672661-00

PATIENT
  Sex: Female

DRUGS (3)
  1. VENETOCLAX. [Suspect]
     Active Substance: VENETOCLAX
     Dosage: 2 TAB DAY 2 BY MOUTH
     Route: 048
  2. VENETOCLAX. [Suspect]
     Active Substance: VENETOCLAX
     Indication: ACUTE MYELOID LEUKAEMIA
     Dosage: 1 TAB DAY1 BY MOUTH
     Route: 048
  3. VENETOCLAX. [Suspect]
     Active Substance: VENETOCLAX
     Dosage: 4 TAB EVERYDAY THEREAFTER MOUTH
     Route: 048

REACTIONS (1)
  - Death [Fatal]
